FAERS Safety Report 24463381 (Version 1)
Quarter: 2024Q4

REPORT INFORMATION
  Report Type: Report from Study
  Country: US (occurrence: US)
  Receive Date: 20241018
  Receipt Date: 20241018
  Transmission Date: 20250114
  Serious: No
  Sender: ROCHE
  Company Number: US-ROCHE-2355893

PATIENT
  Age: 68 Year
  Sex: Female

DRUGS (7)
  1. XOLAIR [Suspect]
     Active Substance: OMALIZUMAB
     Indication: Idiopathic urticaria
     Route: 065
  2. XOLAIR [Suspect]
     Active Substance: OMALIZUMAB
     Indication: Urticaria
     Route: 058
  3. XOLAIR [Suspect]
     Active Substance: OMALIZUMAB
     Indication: Idiopathic urticaria
     Route: 058
     Dates: start: 20230509, end: 20240509
  4. AZELASTINE [Concomitant]
     Active Substance: AZELASTINE
  5. PREDNISONE [Concomitant]
     Active Substance: PREDNISONE
  6. ALLEGRA [Concomitant]
     Active Substance: FEXOFENADINE HYDROCHLORIDE
  7. ROCEPHIN [Concomitant]
     Active Substance: CEFTRIAXONE SODIUM

REACTIONS (2)
  - Off label use [Unknown]
  - No adverse event [Unknown]
